FAERS Safety Report 4405358-5 (Version None)
Quarter: 2004Q3

REPORT INFORMATION
  Report Type: 
  Country: None (occurrence: None)
  Receive Date: 20040720
  Receipt Date: 20040712
  Transmission Date: 20050211
  Serious: Yes (Life-Threatening, Disabling)
  Sender: FDA-Public Use
  Company Number: 2004GB01700

PATIENT
  Age: 78 Year
  Sex: Male
  Weight: 85 kg

DRUGS (5)
  1. LISINOPRIL [Suspect]
     Indication: HYPERTENSION
     Dosage: 10 MG PO
     Route: 048
     Dates: start: 19950101, end: 20040620
  2. TRIMETHOPRIM [Suspect]
     Indication: URINARY TRACT INFECTION
     Dosage: 200 MG PO
     Route: 048
     Dates: start: 20040617, end: 20040620
  3. ASPIRIN [Concomitant]
  4. BENDROFLUAZIDE [Concomitant]
  5. FLOMAX MR ^YAMANOUCHI^ [Concomitant]

REACTIONS (5)
  - ANGIONEUROTIC OEDEMA [None]
  - CARDIO-RESPIRATORY ARREST [None]
  - GLASGOW COMA SCALE ABNORMAL [None]
  - HYPOXIC ENCEPHALOPATHY [None]
  - OBSTRUCTIVE AIRWAYS DISORDER [None]
